FAERS Safety Report 22129887 (Version 1)
Quarter: 2023Q1

REPORT INFORMATION
  Report Type: Spontaneous
  Country: CA (occurrence: CA)
  Receive Date: 20230323
  Receipt Date: 20230323
  Transmission Date: 20230417
  Serious: Yes (Hospitalization)
  Sender: FDA-Public Use
  Company Number: CA-002147023-NVSC2023CA059769

PATIENT
  Age: 52 Year
  Sex: Female

DRUGS (3)
  1. XOLAIR [Suspect]
     Active Substance: OMALIZUMAB
     Indication: Chronic spontaneous urticaria
     Dosage: 450 MG
     Route: 058
  2. CETIRIZINE [Concomitant]
     Active Substance: CETIRIZINE HYDROCHLORIDE
     Indication: Product used for unknown indication
     Dosage: UNK
  3. ROSUVASTATIN [Concomitant]
     Active Substance: ROSUVASTATIN
     Indication: Product used for unknown indication
     Dosage: UNK

REACTIONS (10)
  - Hypervolaemia [Unknown]
  - Ventricular hypokinesia [Unknown]
  - Brain natriuretic peptide increased [Unknown]
  - Cardiomyopathy [Unknown]
  - Venous pressure jugular increased [Unknown]
  - Respiratory failure [Unknown]
  - Ejection fraction decreased [Unknown]
  - Lung infiltration [Unknown]
  - Oedema peripheral [Unknown]
  - Pleural effusion [Unknown]
